FAERS Safety Report 9090606 (Version 2)
Quarter: 2013Q1

REPORT INFORMATION
  Report Type: Spontaneous
  Country: US (occurrence: US)
  Receive Date: 20130201
  Receipt Date: 20130213
  Transmission Date: 20140127
  Serious: No
  Sender: FDA-Public Use
  Company Number: US-PFIZER INC-2013037612

PATIENT
  Age: 76 Year
  Sex: Male
  Weight: 107 kg

DRUGS (1)
  1. VENLAFAXINE HYDROCHLORIDE [Suspect]
     Indication: DEPRESSION
     Dosage: UNK, 4XDAY
     Route: 048

REACTIONS (1)
  - Drug ineffective [Unknown]
